FAERS Safety Report 9731343 (Version 1)
Quarter: 2013Q4

REPORT INFORMATION
  Report Type: Spontaneous
  Country: AU (occurrence: AU)
  Receive Date: 20131203
  Receipt Date: 20131203
  Transmission Date: 20140711
  Serious: Yes (Other)
  Sender: FDA-Public Use
  Company Number: PHHY2013AU139430

PATIENT
  Sex: Female

DRUGS (4)
  1. AFINITOR [Suspect]
  2. EXEMESTANE [Suspect]
  3. ZOCOR [Concomitant]
  4. RAMIPRIL [Concomitant]

REACTIONS (8)
  - Tachypnoea [Unknown]
  - Hyperhidrosis [Unknown]
  - Hypoxia [Unknown]
  - Lung consolidation [Unknown]
  - Performance status decreased [Unknown]
  - Fatigue [Unknown]
  - Lung infiltration [Unknown]
  - Pyrexia [Unknown]
